FAERS Safety Report 7090786-2 (Version None)
Quarter: 2010Q4

REPORT INFORMATION
  Report Type: 
  Country: None (occurrence: None)
  Receive Date: 20101109
  Receipt Date: 20101102
  Transmission Date: 20110411
  Serious: Yes (Death, Other)
  Sender: FDA-Public Use
  Company Number: PHHY2010AR73507

PATIENT
  Sex: Male

DRUGS (1)
  1. CLOZAPINE [Suspect]
     Indication: MENTAL DISORDER
     Dosage: 200 MG, QD
     Dates: start: 19960101

REACTIONS (3)
  - INFECTION [None]
  - SEPTIC SHOCK [None]
  - VARICOSE VEIN [None]
